FAERS Safety Report 12110784 (Version 3)
Quarter: 2016Q1

REPORT INFORMATION
  Report Type: Spontaneous
  Country: US (occurrence: US)
  Receive Date: 20160224
  Receipt Date: 20160315
  Transmission Date: 20160526
  Serious: No
  Sender: FDA-Public Use
  Company Number: US-GILEAD-2016-0200126

PATIENT
  Age: 67 Year
  Sex: Female

DRUGS (1)
  1. ZYDELIG [Suspect]
     Active Substance: IDELALISIB
     Indication: NON-HODGKIN^S LYMPHOMA
     Dosage: UNK
     Route: 065

REACTIONS (7)
  - Dry skin [Unknown]
  - Headache [Unknown]
  - Dysgeusia [Unknown]
  - Aphthous ulcer [Unknown]
  - Dry mouth [Unknown]
  - Urticaria [Recovered/Resolved]
  - Fatigue [Unknown]
